FAERS Safety Report 5233789-2 (Version None)
Quarter: 2007Q1

REPORT INFORMATION
  Report Type: 
  Country: None (occurrence: None)
  Receive Date: 20070208
  Receipt Date: 20070130
  Transmission Date: 20070707
  Serious: Yes (Other)
  Sender: FDA-Public Use
  Company Number: US-ROCHE-481076

PATIENT
  Age: 55 Year
  Sex: Female
  Weight: 89.8 kg

DRUGS (6)
  1. PEG-INTERFERON A-2A (RO 25-8310) [Suspect]
     Route: 058
     Dates: start: 20051013, end: 20060908
  2. RIBAVIRIN [Suspect]
     Route: 048
     Dates: start: 20051013, end: 20060910
  3. AMBIEN [Concomitant]
     Dates: start: 20060618
  4. BUSPIRON [Concomitant]
     Dates: start: 20060718
  5. NEXIUM [Concomitant]
     Dates: start: 20060902
  6. LEXAPRO [Concomitant]
     Dates: start: 20061015

REACTIONS (1)
  - CATARACT [None]
